FAERS Safety Report 22204529 (Version 1)
Quarter: 2023Q2

REPORT INFORMATION
  Report Type: Spontaneous
  Country: US (occurrence: US)
  Receive Date: 20230413
  Receipt Date: 20230413
  Transmission Date: 20230721
  Serious: Yes (Other)
  Sender: FDA-Public Use
  Company Number: US-BRISTOL-MYERS SQUIBB COMPANY-2023-048632

PATIENT
  Age: 67 Year
  Sex: Female
  Weight: 83.91 kg

DRUGS (22)
  1. REVLIMID [Suspect]
     Active Substance: LENALIDOMIDE
     Indication: Plasma cell myeloma
     Dosage: X 21 DY/ 28 DY
     Route: 048
     Dates: start: 20210723
  2. REVLIMID [Suspect]
     Active Substance: LENALIDOMIDE
     Dosage: 25 CAPSULES; USE AS DIRECTED, 21 CT
     Route: 048
     Dates: start: 20221205, end: 20221208
  3. REVLIMID [Suspect]
     Active Substance: LENALIDOMIDE
     Dosage: 25 CAPSULES; USE AS DIRECTED, 21 CT
     Route: 048
     Dates: start: 20221223, end: 20230126
  4. REVLIMID [Suspect]
     Active Substance: LENALIDOMIDE
     Dosage: 21 CT, REFILL NO CHANGES
     Route: 048
     Dates: start: 20230125, end: 20230221
  5. REVLIMID [Suspect]
     Active Substance: LENALIDOMIDE
     Dosage: 21 CT, USE AS DIRECTED
     Route: 048
     Dates: start: 20230221, end: 20230320
  6. REVLIMID [Suspect]
     Active Substance: LENALIDOMIDE
     Dosage: 21 CT, USE AS DIRECTED, REFILL NO CHANGES
     Route: 048
     Dates: start: 20230320, end: 20230404
  7. ALLOPURINOL [Concomitant]
     Active Substance: ALLOPURINOL
     Indication: Product used for unknown indication
     Route: 048
     Dates: start: 20221205, end: 20230102
  8. AMMONIUM LACTATE [Concomitant]
     Active Substance: AMMONIUM LACTATE
     Indication: Product used for unknown indication
     Dosage: ROUTE: EXTERNAL
     Dates: start: 20230102, end: 20230404
  9. AMOXICILLIN\CLAVULANATE POTASSIUM [Concomitant]
     Active Substance: AMOXICILLIN\CLAVULANATE POTASSIUM
     Indication: Product used for unknown indication
     Dosage: 875-125 M
     Route: 048
     Dates: start: 20221205, end: 20221208
  10. DEXAMETHASONE [Concomitant]
     Active Substance: DEXAMETHASONE
     Indication: Product used for unknown indication
     Dosage: INDICATED WITH REVLIMID
     Route: 048
     Dates: start: 20221205
  11. ENOXAPARIN SODIUM [Concomitant]
     Active Substance: ENOXAPARIN SODIUM
     Indication: Product used for unknown indication
     Dosage: ROUTE: INJECT?DOSE: 80 MG/0.8
     Dates: start: 20221205, end: 20230102
  12. FLUTICASONE PROPIONATE [Concomitant]
     Active Substance: FLUTICASONE PROPIONATE
     Indication: Product used for unknown indication
     Dosage: DOSE: 50 MCG; NASAL SUSPENSION
     Route: 045
     Dates: start: 20221205, end: 20230102
  13. ACETAMINOPHEN\HYDROCODONE [Concomitant]
     Active Substance: ACETAMINOPHEN\HYDROCODONE
     Indication: Product used for unknown indication
     Dosage: 5-325 MG DAILY
     Route: 048
     Dates: start: 20221205
  14. LIDOCAINE [Concomitant]
     Active Substance: LIDOCAINE
     Indication: Product used for unknown indication
     Dosage: EXTERNAL PATCH; ROUTE: EXTERNAL
     Dates: start: 20221205, end: 20221208
  15. MECLIZINE HYDROCHLORIDE [Concomitant]
     Active Substance: MECLIZINE HYDROCHLORIDE
     Indication: Product used for unknown indication
     Route: 048
     Dates: start: 20221205, end: 20230102
  16. METFORMIN HYDROCHLORIDE [Concomitant]
     Active Substance: METFORMIN HYDROCHLORIDE
     Indication: Product used for unknown indication
     Route: 048
     Dates: start: 20221205
  17. METRONIDAZOLE [Concomitant]
     Active Substance: METRONIDAZOLE
     Indication: Product used for unknown indication
     Dosage: ROUTE: EXTERN
     Dates: start: 20230102, end: 20230404
  18. PREDNISONE [Concomitant]
     Active Substance: PREDNISONE
     Indication: Product used for unknown indication
     Route: 048
     Dates: start: 20221205, end: 20230102
  19. DEXTROMETHORPHAN;PROMETHAZINE [Concomitant]
     Indication: Product used for unknown indication
     Dosage: 6.25-15 MG
     Route: 048
     Dates: start: 20221205, end: 20230102
  20. SOOLANTRA [Concomitant]
     Active Substance: IVERMECTIN
     Indication: Product used for unknown indication
     Dosage: ROUTE: EXTERNAL
     Dates: start: 20230102, end: 20230404
  21. TOBRAMYCIN [Concomitant]
     Active Substance: TOBRAMYCIN
     Indication: Product used for unknown indication
     Dosage: SOLUTION
     Route: 047
     Dates: start: 20221205, end: 20221208
  22. VENTOLIN HFA [Concomitant]
     Active Substance: ALBUTEROL SULFATE
     Indication: Product used for unknown indication
     Dosage: SOL; 108 (90)
     Route: 055
     Dates: start: 20221205, end: 20221208

REACTIONS (1)
  - Neutropenia [Recovering/Resolving]
